FAERS Safety Report 8127729-6 (Version None)
Quarter: 2012Q1

REPORT INFORMATION
  Report Type: 
  Country: None (occurrence: None)
  Receive Date: 20120210
  Receipt Date: 20120208
  Transmission Date: 20120608
  Serious: Yes (Disabling, Other)
  Sender: FDA-Public Use
  Company Number: CA-AMGEN-CANSP2012002496

PATIENT
  Age: 37 Year
  Sex: Female

DRUGS (2)
  1. ENBREL [Suspect]
     Indication: PSORIATIC ARTHROPATHY
     Dosage: 50 MG, QWK
     Dates: start: 20100925, end: 20110610
  2. REMICADE [Concomitant]
     Dosage: UNK
     Dates: start: 20110611

REACTIONS (4)
  - THERAPEUTIC RESPONSE DECREASED [None]
  - PAIN [None]
  - MOBILITY DECREASED [None]
  - THYROID CANCER [None]
